FAERS Safety Report 9581260 (Version 1)
Quarter: 2013Q4

REPORT INFORMATION
  Report Type: Spontaneous
  Country: US (occurrence: US)
  Receive Date: 20131002
  Receipt Date: 20131002
  Transmission Date: 20140711
  Serious: No
  Sender: FDA-Public Use
  Company Number: US-PFIZER INC-2013280257

PATIENT
  Age: 72 Year
  Sex: Female

DRUGS (14)
  1. MORPHINE SULFATE [Suspect]
     Dosage: UNK
  2. ACTOS [Concomitant]
     Dosage: 30 MG, 1X/DAY
     Route: 048
  3. AMLODIPINE BESILATE [Concomitant]
     Dosage: 5 MG, 1X/DAY
     Route: 048
  4. ASPIRIN ^BAYER^ [Concomitant]
     Dosage: 325 MG, 1X/DAY
     Route: 048
  5. BENZONATATE [Concomitant]
     Dosage: 100 MG, 1X/DAY
     Route: 048
  6. CYCLOBENZAPRINE HYDROCHLORIDE [Concomitant]
     Dosage: 10 MG, 1X/DAY
     Route: 048
  7. FERROUS SULFATE [Concomitant]
     Dosage: 325 MG, 1X/DAY
     Route: 048
  8. GLIPIZIDE [Concomitant]
     Dosage: 10 MG, 2X/DAY
     Route: 048
  9. LISINOPRIL W/HYDROCHLOROTHIAZIDE [Concomitant]
     Dosage: 20-12.5 MG: 1 DF, 2X/DAY
     Route: 048
  10. METFORMIN HYDROCHLORIDE [Concomitant]
     Dosage: 500 MG, 2X/DAY
     Route: 048
  11. NAPROXEN [Concomitant]
     Dosage: 500 MG, 2X/DAY
     Route: 048
  12. OMEPRAZOLE [Concomitant]
     Dosage: 20 MG, 1X/DAY
     Route: 048
  13. OXYCODONE HYDROCHLORIDE [Concomitant]
     Dosage: 5 MG, EVERY 4 HRS
     Route: 048
  14. SERTRALINE HYDROCHLORIDE [Concomitant]
     Dosage: 50 MG, 1X/DAY
     Route: 048

REACTIONS (1)
  - Drug hypersensitivity [Unknown]
